FAERS Safety Report 8992913 (Version 5)
Quarter: 2013Q1

REPORT INFORMATION
  Report Type: Spontaneous
  Country: JP (occurrence: JP)
  Receive Date: 20130102
  Receipt Date: 20130121
  Transmission Date: 20140127
  Serious: Yes (Death, Other)
  Sender: FDA-Public Use
  Company Number: JP-JNJFOC-20121213170

PATIENT
  Age: 69 Year
  Sex: Male

DRUGS (8)
  1. REMINYL [Suspect]
     Indication: DEMENTIA
     Route: 048
     Dates: end: 20121222
  2. MICARDIS [Suspect]
     Indication: PRODUCT USED FOR UNKNOWN INDICATION
     Route: 048
     Dates: end: 20121222
  3. PLAVIX [Suspect]
     Indication: PRODUCT USED FOR UNKNOWN INDICATION
     Route: 048
     Dates: end: 20121222
  4. FLUITRAN [Concomitant]
     Route: 048
     Dates: end: 20121222
  5. NIFEDIPINE [Concomitant]
     Route: 048
     Dates: end: 20121222
  6. BAYASPIRIN [Concomitant]
     Route: 048
     Dates: end: 20121222
  7. ALLOZYM [Concomitant]
     Route: 048
     Dates: end: 20121222
  8. POTASSIUM CITRATE W/SODIUM CITRATE [Concomitant]
     Route: 048
     Dates: end: 20121222

REACTIONS (3)
  - Ventricular fibrillation [Fatal]
  - Bradycardia [Not Recovered/Not Resolved]
  - Blood pressure decreased [Not Recovered/Not Resolved]
